FAERS Safety Report 8988758 (Version 1)
Quarter: 2012Q4

REPORT INFORMATION
  Report Type: Spontaneous
  Country: DK (occurrence: None)
  Receive Date: 20121219
  Receipt Date: 20121219
  Transmission Date: 20130627
  Serious: Yes (Hospitalization)
  Sender: FDA-Public Use
  Company Number: 2012MA014104

PATIENT
  Age: 35 Year
  Sex: Male

DRUGS (1)
  1. RAMIPRIL [Suspect]
     Indication: HYPERTENSION
     Route: 048
     Dates: start: 20120916, end: 20121126

REACTIONS (4)
  - Nasopharyngitis [None]
  - Chest pain [None]
  - Seasonal allergy [None]
  - Oropharyngeal pain [None]
